FAERS Safety Report 5479691-2 (Version None)
Quarter: 2007Q4

REPORT INFORMATION
  Report Type: 
  Country: None (occurrence: None)
  Receive Date: 20071008
  Receipt Date: 20071004
  Transmission Date: 20080405
  Serious: Yes (Life-Threatening)
  Sender: FDA-Public Use
  Company Number: B0490178A

PATIENT
  Age: 80 Year
  Sex: Male

DRUGS (6)
  1. SEROXAT [Suspect]
     Route: 048
  2. IBUPROFEN [Suspect]
     Indication: PAIN
     Dosage: 600MG PER DAY
     Route: 048
     Dates: end: 20070621
  3. SINTROM [Suspect]
     Indication: ATRIAL FIBRILLATION
     Route: 048
     Dates: start: 20061001, end: 20070621
  4. HIDROSALURETIL [Suspect]
     Indication: RENOVASCULAR HYPERTENSION
     Route: 048
  5. RANITIDINE HCL [Suspect]
     Dosage: 1MG PER DAY
     Route: 048
     Dates: start: 19950101, end: 20070621
  6. CARDURA [Suspect]
     Indication: RENOVASCULAR HYPERTENSION
     Dosage: 8MG PER DAY
     Route: 048

REACTIONS (2)
  - DRUG INTERACTION [None]
  - GASTROINTESTINAL HAEMORRHAGE [None]
